FAERS Safety Report 15351797 (Version 1)
Quarter: 2018Q3

REPORT INFORMATION
  Report Type: Spontaneous
  Country: US (occurrence: US)
  Receive Date: 20180905
  Receipt Date: 20180905
  Transmission Date: 20181010
  Serious: No
  Sender: FDA-Public Use
  Company Number: US-BAYER-2018-161959

PATIENT
  Age: 24 Year
  Sex: Female

DRUGS (1)
  1. MIRENA [Suspect]
     Active Substance: LEVONORGESTREL
     Indication: CONTRACEPTION
     Dosage: 20 MCG/24HR, CONT
     Route: 015
     Dates: start: 201802

REACTIONS (3)
  - Ovarian cyst [Not Recovered/Not Resolved]
  - Peripheral circulatory failure [Not Recovered/Not Resolved]
  - Adnexa uteri pain [Not Recovered/Not Resolved]

NARRATIVE: CASE EVENT DATE: 201802
